FAERS Safety Report 15036511 (Version 2)
Quarter: 2018Q3

REPORT INFORMATION
  Report Type: Spontaneous
  Country: JP (occurrence: JP)
  Receive Date: 20180620
  Receipt Date: 20180907
  Transmission Date: 20181010
  Serious: Yes (Other)
  Sender: FDA-Public Use
  Company Number: JP-PFIZER INC-2018247048

PATIENT
  Age: 89 Year
  Sex: Female

DRUGS (4)
  1. LYRICA [Suspect]
     Active Substance: PREGABALIN
     Dosage: 25 MG, 2X/DAY (MORNING AND EVENING)
     Dates: start: 20180518, end: 20180615
  2. LYRICA [Suspect]
     Active Substance: PREGABALIN
     Indication: NEURALGIA
     Dosage: 25 MG, 1X/DAY (EVENING)
     Dates: start: 20180413, end: 20180517
  3. MOHRUS [Concomitant]
     Active Substance: KETOPROFEN
     Dosage: UNK
  4. SUMILU STICK [Concomitant]

REACTIONS (2)
  - Arrhythmia [Recovered/Resolved]
  - Blood pressure increased [Recovering/Resolving]

NARRATIVE: CASE EVENT DATE: 20180615
